FAERS Safety Report 8877502 (Version 1)
Quarter: 2012Q4

REPORT INFORMATION
  Report Type: Spontaneous
  Country: US (occurrence: None)
  Receive Date: 20121026
  Receipt Date: 20121026
  Transmission Date: 20130627
  Serious: Yes (Hospitalization)
  Sender: FDA-Public Use
  Company Number: 2012AP003434

PATIENT
  Age: 20 Year
  Sex: Male

DRUGS (10)
  1. CITALOPRAM HYDROBROMIDE [Suspect]
     Indication: OVERDOSE
  2. LEVETIRACETAM [Suspect]
     Indication: OVERDOSE
  3. DOXEPIN [Suspect]
     Indication: OVERDOSE
  4. LIPID EMULSION [Suspect]
     Indication: CARDIAC ARREST
  5. LORAZEPAM [Concomitant]
  6. FOSPHENYTOIN [Concomitant]
  7. SODIUM BICARBONATE [Concomitant]
  8. EPINEPHRINE [Concomitant]
  9. NOREPINEPHRINE [Concomitant]
  10. AMIODARONE [Concomitant]

REACTIONS (12)
  - Unresponsive to stimuli [None]
  - Grand mal convulsion [None]
  - Electrocardiogram QRS complex prolonged [None]
  - Bradycardia [None]
  - Cardiac arrest [None]
  - Overdose [None]
  - Toxicity to various agents [None]
  - Pancreatitis [None]
  - Blood pressure decreased [None]
  - Heart rate increased [None]
  - Blood pH decreased [None]
  - Blood triglycerides increased [None]
